FAERS Safety Report 24645473 (Version 1)
Quarter: 2024Q4

REPORT INFORMATION
  Report Type: Spontaneous
  Country: DE (occurrence: DE)
  Receive Date: 20241121
  Receipt Date: 20241121
  Transmission Date: 20250115
  Serious: Yes (Other)
  Sender: ALKEM
  Company Number: None

PATIENT
  Age: 34 Year
  Sex: Male
  Weight: 80 kg

DRUGS (3)
  1. FINASTERIDE [Suspect]
     Active Substance: FINASTERIDE
     Indication: Alopecia
     Dosage: 1.25 MILLIGRAM, QD (EVERY 1 DAY)
     Route: 048
  2. FINASTERIDE [Suspect]
     Active Substance: FINASTERIDE
     Dosage: 1.25 MILLIGRAM (EVERY 2 DAY)
     Route: 048
  3. CITALOPRAM [Concomitant]
     Active Substance: CITALOPRAM
     Indication: Depression
     Dosage: UNK
     Route: 048

REACTIONS (10)
  - Mental impairment [Recovered/Resolved]
  - Depression [Recovered/Resolved]
  - Suicidal ideation [Recovered/Resolved]
  - Brain fog [Recovered/Resolved]
  - Fatigue [Recovered/Resolved]
  - Hyperhidrosis [Recovered/Resolved]
  - Mood altered [Recovered/Resolved]
  - Panic attack [Recovered/Resolved]
  - Withdrawal syndrome [Recovered/Resolved]
  - Libido decreased [Recovered/Resolved]

NARRATIVE: CASE EVENT DATE: 20200101
